FAERS Safety Report 16013302 (Version 1)
Quarter: 2019Q1

REPORT INFORMATION
  Report Type: Report from Study
  Country: SK (occurrence: SK)
  Receive Date: 20190227
  Receipt Date: 20190227
  Transmission Date: 20190418
  Serious: Yes (Other)
  Sender: FDA-Public Use
  Company Number: SK-UCBSA-2019007800

PATIENT

DRUGS (1)
  1. CERTOLIZUMAB PEGOL [Suspect]
     Active Substance: CERTOLIZUMAB PEGOL
     Indication: RHEUMATOID ARTHRITIS
     Dosage: UNK

REACTIONS (7)
  - Infection [Unknown]
  - Liver disorder [Unknown]
  - Nervous system disorder [Unknown]
  - Neoplasm malignant [Unknown]
  - Cardiovascular disorder [Unknown]
  - Tuberculosis [Unknown]
  - Hypersensitivity [Unknown]
